FAERS Safety Report 16881224 (Version 1)
Quarter: 2019Q4

REPORT INFORMATION
  Report Type: Spontaneous
  Country: JP (occurrence: JP)
  Receive Date: 20191003
  Receipt Date: 20191003
  Transmission Date: 20200122
  Serious: Yes (Hospitalization)
  Sender: FDA-Public Use
  Company Number: JP-BAYER-2019-175453

PATIENT
  Age: 59 Year
  Sex: Male
  Weight: 85 kg

DRUGS (5)
  1. THROMBOMODULIN ALFA [Concomitant]
     Active Substance: THROMBOMODULIN ALFA
     Dosage: UNK
  2. METHYLPREDNISOLONE. [Concomitant]
     Active Substance: METHYLPREDNISOLONE
     Dosage: DAILY DOSE 125 MG
  3. FRESH FROZEN PLASMA [Concomitant]
     Active Substance: HUMAN PLASMA
  4. PLATELETS [Concomitant]
     Active Substance: HUMAN PLATELET, ALLOGENIC
  5. STIVARGA [Suspect]
     Active Substance: REGORAFENIB
     Indication: COLON CANCER
     Dosage: 120 MG,   ON FOR 3 WEEKS AND OFF FOR 1 WEEK
     Route: 048

REACTIONS (5)
  - Malaise [None]
  - Pyrexia [None]
  - Tachycardia [None]
  - Chromaturia [Recovering/Resolving]
  - Dysphonia [None]

NARRATIVE: CASE EVENT DATE: 2018
